FAERS Safety Report 9228145 (Version 2)
Quarter: 2013Q2

REPORT INFORMATION
  Report Type: Report from Study
  Country: CH (occurrence: CH)
  Receive Date: 20130412
  Receipt Date: 20130606
  Transmission Date: 20140414
  Serious: Yes (Death)
  Sender: FDA-Public Use
  Company Number: CH-ROCHE-1209711

PATIENT
  Sex: 0

DRUGS (1)
  1. ALTEPLASE [Suspect]
     Indication: CEREBRAL INFARCTION
     Route: 042

REACTIONS (2)
  - Death [Fatal]
  - Haemorrhagic transformation stroke [Fatal]
